FAERS Safety Report 25114942 (Version 1)
Quarter: 2025Q1

REPORT INFORMATION
  Report Type: Spontaneous
  Country: TH (occurrence: TH)
  Receive Date: 20250324
  Receipt Date: 20250324
  Transmission Date: 20250409
  Serious: Yes (Death, Other)
  Sender: OTSUKA
  Company Number: TH-MMM-Otsuka-T51NGMEV

PATIENT
  Age: 57 Year
  Sex: Male

DRUGS (20)
  1. ABILIFY MAINTENA [Suspect]
     Active Substance: ARIPIPRAZOLE
     Indication: Schizophrenia
     Dosage: 400 MG, QM (1 SYRINGE EVERY THE 21ST OF THE MONTH)
     Route: 030
     Dates: start: 20250121, end: 20250221
  2. CLONAZEPAM [Concomitant]
     Active Substance: CLONAZEPAM
     Indication: Product used for unknown indication
     Dosage: 2 MG, QD (BEFORE BED)
     Route: 048
  3. CLOPAZE [Concomitant]
     Indication: Product used for unknown indication
     Dosage: 100 MG, QD (BEFORE BED)
     Route: 048
  4. MAGNESIUM HYDROXIDE [Concomitant]
     Active Substance: MAGNESIUM HYDROXIDE
     Indication: Constipation
     Route: 048
  5. ACETAMINOPHEN [Concomitant]
     Active Substance: ACETAMINOPHEN
     Indication: Pain
     Route: 048
  6. ACETAMINOPHEN [Concomitant]
     Active Substance: ACETAMINOPHEN
     Indication: Pyrexia
  7. PROPRANOLOL [Concomitant]
     Active Substance: PROPRANOLOL HYDROCHLORIDE
     Indication: Product used for unknown indication
     Dosage: 10 MG, BID (AFTER MEAL IN THE MORNING AND BEFORE BED)
     Route: 048
  8. VALPROATE SODIUM [Concomitant]
     Active Substance: VALPROATE SODIUM
     Indication: Product used for unknown indication
     Dosage: 500 MG, BID (AFTER MEAL IN THE MORNING AND BEFORE BED)
     Route: 048
  9. BENZ [TRIHEXYPHENIDYL HYDROCHLORIDE] [Concomitant]
     Indication: Product used for unknown indication
     Dosage: 5 MG, BID (AFTER MEAL IN THE MORNING AND BEFORE BED)
     Route: 048
  10. ENALAPRIL [Concomitant]
     Active Substance: ENALAPRIL
     Indication: Product used for unknown indication
     Dosage: 5 MG, BID (AFTER MEAL IN THE MORNING AND EVENING)
     Route: 048
  11. METFORMIN [Concomitant]
     Active Substance: METFORMIN HYDROCHLORIDE
     Indication: Product used for unknown indication
     Dosage: 500 MG, QD (AFTER MEAL IN THE MORNING)
     Route: 048
  12. AMLODIPINE [Concomitant]
     Active Substance: AMLODIPINE BESYLATE
     Indication: Product used for unknown indication
     Dosage: 5 MG, QD (AFTER MEAL IN THE MORNING)
     Route: 048
  13. CATAPRES [Concomitant]
     Active Substance: CLONIDINE HYDROCHLORIDE
     Indication: Product used for unknown indication
     Dosage: 0.15 MG, BID (AFTER MEAL IN THE MORNING AND EVENING)
     Route: 048
  14. DEPO-A [Concomitant]
     Indication: Product used for unknown indication
     Route: 030
  15. TRAZODEL [Concomitant]
     Indication: Product used for unknown indication
     Dosage: 0.5 DF, QD (BEFORE BED)
     Route: 048
  16. INSULIN HUMAN [Concomitant]
     Active Substance: INSULIN HUMAN
     Indication: Product used for unknown indication
     Route: 065
  17. HYPODINE [Concomitant]
     Indication: Product used for unknown indication
     Dosage: 0.15 MG, BID (AFTER MEAL IN THE MORNING AND EVENING)
     Route: 048
  18. TAMIFLU [Concomitant]
     Active Substance: OSELTAMIVIR PHOSPHATE
     Indication: Product used for unknown indication
     Route: 065
  19. CETIRIZINE [Concomitant]
     Active Substance: CETIRIZINE HYDROCHLORIDE
     Indication: Product used for unknown indication
     Route: 065
  20. DMPA [Concomitant]
     Indication: Product used for unknown indication
     Route: 030

REACTIONS (1)
  - Myocardial infarction [Fatal]

NARRATIVE: CASE EVENT DATE: 20250315
